FAERS Safety Report 6405329-3 (Version None)
Quarter: 2009Q4

REPORT INFORMATION
  Report Type: 
  Country: None (occurrence: None)
  Receive Date: 20091016
  Receipt Date: 20091016
  Transmission Date: 20100525
  Serious: Yes (Life-Threatening, Hospitalization)
  Sender: FDA-Public Use
  Company Number: None

PATIENT
  Age: 32 Year
  Sex: Female
  Weight: 58.514 kg

DRUGS (1)
  1. VALTREX [Suspect]
     Indication: ANOGENITAL WARTS
     Dosage: ONE TABLET ONCE DAILY BY MOUTH
     Route: 048
     Dates: start: 20090513, end: 20090524

REACTIONS (5)
  - BACK PAIN [None]
  - COMA [None]
  - NASOPHARYNGITIS [None]
  - RENAL FAILURE ACUTE [None]
  - SYSTEMIC LUPUS ERYTHEMATOSUS [None]
